FAERS Safety Report 11501024 (Version 1)
Quarter: 2015Q3

REPORT INFORMATION
  Report Type: Spontaneous
  Country: US (occurrence: US)
  Receive Date: 20150903
  Receipt Date: 20150903
  Transmission Date: 20151125
  Serious: No
  Sender: FDA-Public Use
  Company Number: US-ELI_LILLY_AND_COMPANY-US200901003955

PATIENT
  Age: 58 Year
  Sex: Male

DRUGS (16)
  1. LISINOPRIL. [Concomitant]
     Active Substance: LISINOPRIL
  2. LANTUS [Concomitant]
     Active Substance: INSULIN GLARGINE
  3. ALOPURINOL [Concomitant]
     Active Substance: ALLOPURINOL
  4. ASA [Concomitant]
     Active Substance: ASPIRIN
  5. BYETTA [Concomitant]
     Active Substance: EXENATIDE
  6. CRESTOR [Concomitant]
     Active Substance: ROSUVASTATIN CALCIUM
  7. SEROQUEL [Concomitant]
     Active Substance: QUETIAPINE FUMARATE
  8. HUMALOG [Suspect]
     Active Substance: INSULIN LISPRO
  9. DIOVAN [Concomitant]
     Active Substance: VALSARTAN
  10. CARDIZEM [Concomitant]
     Active Substance: DILTIAZEM HYDROCHLORIDE
  11. OXYCODONE [Concomitant]
     Active Substance: OXYCODONE
  12. LEVOXYL [Concomitant]
     Active Substance: LEVOTHYROXINE SODIUM
  13. CARDURA [Concomitant]
     Active Substance: DOXAZOSIN MESYLATE
  14. TRAMADOL. [Concomitant]
     Active Substance: TRAMADOL
  15. WELLBATRIN [Concomitant]
     Active Substance: BUPROPION HYDROCHLORIDE
  16. CELEBREX [Concomitant]
     Active Substance: CELECOXIB

REACTIONS (3)
  - Vision blurred [Not Recovered/Not Resolved]
  - Visual acuity reduced [Not Recovered/Not Resolved]
  - Depression [Unknown]

NARRATIVE: CASE EVENT DATE: 2006
